FAERS Safety Report 4893173-8 (Version None)
Quarter: 2005Q4

REPORT INFORMATION
  Report Type: 
  Country: None (occurrence: None)
  Receive Date: 20051223
  Receipt Date: 20050914
  Transmission Date: 20060501
  Serious: No
  Sender: FDA-Public Use
  Company Number: 2005PV002100

PATIENT
  Age: 65 Year
  Sex: Male
  Weight: 77.1115 kg

DRUGS (12)
  1. SYMLIN [Suspect]
     Indication: DIABETES MELLITUS INSULIN-DEPENDENT
     Dosage: 42 MCG; SC; SEE IMAGE
     Route: 058
     Dates: start: 20050824, end: 20050101
  2. SYMLIN [Suspect]
     Indication: DIABETES MELLITUS INSULIN-DEPENDENT
     Dosage: 42 MCG; SC; SEE IMAGE
     Route: 058
     Dates: start: 20050101, end: 20050911
  3. SYMLIN [Suspect]
     Indication: DIABETES MELLITUS INSULIN-DEPENDENT
     Dosage: 42 MCG; SC; SEE IMAGE
     Route: 058
     Dates: start: 20050912, end: 20050914
  4. NIASPAN [Suspect]
     Indication: BLOOD CHOLESTEROL
     Dosage: 500 MG; BID; PO
     Route: 048
  5. CALCIUM GLUCONATE [Concomitant]
  6. PLAVIX [Concomitant]
  7. LISINOPRIL [Concomitant]
  8. METAPROLOL [Concomitant]
  9. GLYCOLAX [Concomitant]
  10. PRAVACHOL [Concomitant]
  11. FOLIC ACID [Concomitant]
  12. NOVOLOG [Concomitant]

REACTIONS (4)
  - FLUSHING [None]
  - HEADACHE [None]
  - NAUSEA [None]
  - VOMITING [None]
